FAERS Safety Report 5488231-3 (Version None)
Quarter: 2007Q4

REPORT INFORMATION
  Report Type: 
  Country: None (occurrence: None)
  Receive Date: 20071017
  Receipt Date: 20071015
  Transmission Date: 20080405
  Serious: Yes (Hospitalization)
  Sender: FDA-Public Use
  Company Number: A0688286A

PATIENT
  Age: 43 Year
  Sex: Male

DRUGS (2)
  1. TUMS PEPPERMINT [Suspect]
     Indication: DRUG USE FOR UNKNOWN INDICATION
     Dosage: 1TAB THREE TIMES PER DAY
     Route: 048
     Dates: start: 19970101, end: 20070101
  2. NO CONCURRENT MEDICATION [Concomitant]

REACTIONS (2)
  - LIVER DISORDER [None]
  - VOMITING [None]
